FAERS Safety Report 7807248-4 (Version None)
Quarter: 2011Q4

REPORT INFORMATION
  Report Type: 
  Country: None (occurrence: None)
  Receive Date: 20111011
  Receipt Date: 20111005
  Transmission Date: 20120403
  Serious: Yes (Hospitalization, Other)
  Sender: FDA-Public Use
  Company Number: MY-PFIZER INC-2011238189

PATIENT
  Age: 75 Year
  Sex: Female

DRUGS (2)
  1. LYRICA [Suspect]
     Indication: SCIATICA
     Dosage: 75 MG, UNK
     Dates: start: 20110903, end: 20110904
  2. PETHIDINE [Concomitant]

REACTIONS (2)
  - RESPIRATORY ARREST [None]
  - SOMNOLENCE [None]
